FAERS Safety Report 6214602-3 (Version None)
Quarter: 2009Q2

REPORT INFORMATION
  Report Type: 
  Country: None (occurrence: None)
  Receive Date: 20090604
  Receipt Date: 20090522
  Transmission Date: 20091009
  Serious: Yes (Other)
  Sender: FDA-Public Use
  Company Number: CH-PFIZER INC-2009196726

PATIENT
  Age: 16 Year

DRUGS (3)
  1. ZOLOFT [Suspect]
     Indication: DEPRESSION
     Dosage: 100 MG, 1X/DAY
     Route: 048
     Dates: start: 20090101
  2. ZOLOFT [Suspect]
     Indication: EDUCATIONAL PROBLEM
     Dosage: 100 MG, 1X/DAY
     Route: 048
     Dates: start: 20090113, end: 20090126
  3. ZOLOFT [Suspect]
     Indication: SOCIAL AVOIDANT BEHAVIOUR
     Dosage: 50 MG, 1X/DAY
     Route: 048

REACTIONS (3)
  - HYPERHIDROSIS [None]
  - PALPITATIONS [None]
  - PANIC ATTACK [None]
